FAERS Safety Report 21169360 (Version 2)
Quarter: 2022Q3

REPORT INFORMATION
  Report Type: Spontaneous
  Country: ES (occurrence: ES)
  Receive Date: 20220804
  Receipt Date: 20220806
  Transmission Date: 20221027
  Serious: Yes (Hospitalization, Other)
  Sender: FDA-Public Use
  Company Number: ES-AEMPS-1230950

PATIENT
  Age: 83 Year
  Sex: Male

DRUGS (6)
  1. VALACYCLOVIR HYDROCHLORIDE [Suspect]
     Active Substance: VALACYCLOVIR HYDROCHLORIDE
     Indication: Herpes ophthalmic
     Dosage: 500 MILLIGRAM, TWO TIMES A DAY
     Route: 048
     Dates: start: 20220224, end: 20220301
  2. FLUTICASONE FUROATE [Concomitant]
     Active Substance: FLUTICASONE FUROATE
     Indication: Product used for unknown indication
     Dosage: UNK
     Route: 045
     Dates: start: 20210701
  3. AZOPT [Concomitant]
     Active Substance: BRINZOLAMIDE
     Indication: Ocular hypertension
     Dosage: 1 GTT DROPS, TWO TIMES A DAY
     Dates: start: 20220201
  4. BRIMVERA [Concomitant]
     Indication: Ocular hypertension
     Dosage: 1 GTT DROPS, TWO TIMES A DAY
     Dates: start: 20220201
  5. FOSQUEL [Concomitant]
     Indication: Product used for unknown indication
     Dosage: 2.4 GRAM, 3 TIMES A DAY
     Route: 048
     Dates: start: 20220201
  6. BIMATOPROST\TIMOLOL [Concomitant]
     Active Substance: BIMATOPROST\TIMOLOL
     Indication: Ocular hypertension
     Dosage: 1 GTT DROPS, ONCE A DAY
     Dates: start: 20220201

REACTIONS (4)
  - Hallucination, visual [Recovered/Resolved]
  - Disorientation [Not Recovered/Not Resolved]
  - Agitation [Recovered/Resolved]
  - Confusional state [Recovered/Resolved]

NARRATIVE: CASE EVENT DATE: 20220227
